FAERS Safety Report 7346903-X (Version None)
Quarter: 2011Q1

REPORT INFORMATION
  Report Type: 
  Country: None (occurrence: None)
  Receive Date: 20110311
  Receipt Date: 20110303
  Transmission Date: 20110831
  Serious: Yes (Hospitalization)
  Sender: FDA-Public Use
  Company Number: IT-ELI_LILLY_AND_COMPANY-IT201103000949

PATIENT
  Age: 70 Year
  Sex: Male
  Weight: 69 kg

DRUGS (6)
  1. GEMCITABINE HYDROCHLORIDE [Suspect]
     Indication: NON-SMALL CELL LUNG CANCER
     Dosage: 2110 MG (1200MG/M2),
     Route: 042
     Dates: start: 20101214
  2. CISPLATIN [Suspect]
     Indication: NON-SMALL CELL LUNG CANCER
     Dosage: 130 MG (75MG/M2), UNKNOWN
     Route: 042
     Dates: start: 20101214
  3. SOLDESAM [Concomitant]
     Indication: PROPHYLAXIS
     Dosage: 8 MG, ONCE PER CYCLE
     Route: 042
     Dates: start: 20101221, end: 20110201
  4. PLASIL [Concomitant]
     Indication: PROPHYLAXIS
     Dosage: 20 MG, ONCE PER CYCLE
     Route: 048
     Dates: start: 20101214, end: 20110201
  5. NAVOBAN [Concomitant]
     Indication: PROPHYLAXIS
     Dosage: 20 MG, EVERY CYCLE
     Route: 042
     Dates: start: 20101214, end: 20110201
  6. DELTACORTENE [Concomitant]
     Indication: PROPHYLAXIS
     Route: 042
     Dates: start: 20101214, end: 20110221

REACTIONS (6)
  - FEBRILE NEUTROPENIA [None]
  - SEPSIS [None]
  - ESCHERICHIA INFECTION [None]
  - DEVICE RELATED INFECTION [None]
  - GASTROINTESTINAL CANDIDIASIS [None]
  - STAPHYLOCOCCAL INFECTION [None]
